FAERS Safety Report 9130282 (Version 2)
Quarter: 2013Q2

REPORT INFORMATION
  Report Type: Spontaneous
  Country: AU (occurrence: AU)
  Receive Date: 20130228
  Receipt Date: 20130415
  Transmission Date: 20140414
  Serious: Yes (Hospitalization, Other)
  Sender: FDA-Public Use
  Company Number: AU-PFIZER INC-2013071038

PATIENT
  Age: 74 Year
  Sex: Female
  Weight: 71 kg

DRUGS (3)
  1. LYRICA [Suspect]
     Indication: NEURALGIA
     Dosage: 75 MG, 2X/DAY
     Route: 048
     Dates: start: 20130227, end: 20130228
  2. AVAPRO [Concomitant]
  3. THYROXINE [Concomitant]

REACTIONS (3)
  - Cerebrovascular accident [Unknown]
  - Somnolence [Recovered/Resolved]
  - Confusional state [Unknown]
